FAERS Safety Report 12633748 (Version 1)
Quarter: 2016Q3

REPORT INFORMATION
  Report Type: Spontaneous
  Country: CH (occurrence: CH)
  Receive Date: 20160808
  Receipt Date: 20160808
  Transmission Date: 20161109
  Serious: Yes (Hospitalization)
  Sender: FDA-Public Use
  Company Number: CH-BAYER-2016-145966

PATIENT
  Age: 69 Year
  Sex: Female

DRUGS (11)
  1. PANTOZOL [Suspect]
     Active Substance: PANTOPRAZOLE SODIUM
     Dosage: SINCE AT LEAST 3 YEARS
     Route: 048
  2. IMUREK [Suspect]
     Active Substance: AZATHIOPRINE
     Indication: INTERSTITIAL LUNG DISEASE
     Dosage: 50 MG, BID
     Route: 048
     Dates: start: 201308
  3. SPIRICORT [Concomitant]
     Active Substance: PREDNISOLONE
     Indication: INTERSTITIAL LUNG DISEASE
  4. REMODULIN [Concomitant]
     Active Substance: TREPROSTINIL
     Indication: PULMONARY ARTERIAL HYPERTENSION
     Dosage: .0325 ?G/KG, Q1MIN CONTINUOUS INFUSION BY PUMP
     Route: 041
  5. ADEMPAS [Suspect]
     Active Substance: RIOCIGUAT
     Indication: PULMONARY ARTERIAL HYPERTENSION
     Dosage: 1 MG, UNK
     Dates: start: 20160614
  6. TORASEMIDE [Suspect]
     Active Substance: TORSEMIDE
     Dosage: 15 MG, QD, SINCE LONGER TIME (}3 MONTHS)
     Route: 048
  7. REMODULIN [Concomitant]
     Active Substance: TREPROSTINIL
     Indication: INTERSTITIAL LUNG DISEASE
  8. MARCOUMAR [Concomitant]
     Active Substance: PHENPROCOUMON
     Dosage: PRN BY INR
  9. NOVALGIN [Suspect]
     Active Substance: METAMIZOLE SODIUM
     Indication: RHEUMATIC DISORDER
     Dosage: 500 MG, 1 DOSE 20-JUN-2016 +/- 2 DAYSX1 DOSE 30-JUN-2016
  10. NOVALGIN [Suspect]
     Active Substance: METAMIZOLE SODIUM
     Indication: ARTHRALGIA
  11. OPSUMIT [Suspect]
     Active Substance: MACITENTAN
     Indication: PULMONARY ARTERIAL HYPERTENSION
     Dosage: UNK
     Dates: start: 201408

REACTIONS (3)
  - Agranulocytosis [Recovered/Resolved]
  - Thrombocytopenia [Recovered/Resolved]
  - Anaemia macrocytic [Recovered/Resolved]

NARRATIVE: CASE EVENT DATE: 20160627
